FAERS Safety Report 13762957 (Version 1)
Quarter: 2017Q3

REPORT INFORMATION
  Report Type: Spontaneous
  Country: US (occurrence: US)
  Receive Date: 20170718
  Receipt Date: 20170718
  Transmission Date: 20171127
  Serious: Yes (Disabling)
  Sender: FDA-Public Use
  Company Number: None

PATIENT
  Age: 44 Year
  Sex: Female
  Weight: 78.3 kg

DRUGS (8)
  1. FLONASE [Concomitant]
     Active Substance: FLUTICASONE PROPIONATE
  2. ZYRTEC [Concomitant]
     Active Substance: CETIRIZINE HYDROCHLORIDE
  3. VENLAFAXINE HCL [Suspect]
     Active Substance: VENLAFAXINE HYDROCHLORIDE
     Indication: DEPRESSION
     Dosage: ?          OTHER STRENGTH:MG;QUANTITY:3 TABLET(S);?
     Route: 048
  4. BUPROPION. [Concomitant]
     Active Substance: BUPROPION
  5. CYCLOBEBZAPRINE [Concomitant]
  6. LAMOTRAGINE [Concomitant]
     Active Substance: LAMOTRIGINE
  7. FIORCET [Concomitant]
  8. ACETAMINOPHEN. [Concomitant]
     Active Substance: ACETAMINOPHEN

REACTIONS (19)
  - Gastrointestinal disorder [None]
  - Paraesthesia [None]
  - Suicidal ideation [None]
  - Chest pain [None]
  - Mood altered [None]
  - Impaired work ability [None]
  - Depression [None]
  - Nausea [None]
  - Vomiting [None]
  - Impaired quality of life [None]
  - Diarrhoea [None]
  - Malaise [None]
  - Withdrawal syndrome [None]
  - Migraine [None]
  - Palpitations [None]
  - Myocardial infarction [None]
  - Bipolar disorder [None]
  - Abdominal pain upper [None]
  - Pain [None]

NARRATIVE: CASE EVENT DATE: 20161107
